FAERS Safety Report 5609917-3 (Version None)
Quarter: 2008Q1

REPORT INFORMATION
  Report Type: 
  Country: None (occurrence: None)
  Receive Date: 20080131
  Receipt Date: 20080121
  Transmission Date: 20080703
  Serious: Yes (Hospitalization)
  Sender: FDA-Public Use
  Company Number: US-ELI_LILLY_AND_COMPANY-US200801004324

PATIENT
  Age: 53 Year
  Sex: Female

DRUGS (7)
  1. FLUOXETINE HYDROCHLORIDE [Suspect]
     Indication: FATIGUE
     Dosage: 40 MG, DAILY (1/D)
  2. FLUOXETINE HYDROCHLORIDE [Suspect]
     Dosage: 40 MG, DAILY (1/D)
  3. BACLOFEN [Concomitant]
  4. MODAFINIL [Concomitant]
     Indication: FATIGUE
     Dosage: 200 MG, UNK
  5. AMANTADINE HCL [Concomitant]
     Indication: FATIGUE
     Dosage: 200 MG, UNK
  6. OXYBUTYNIN CHLORIDE [Concomitant]
     Indication: AUTOMATIC BLADDER
     Dosage: 10 MG, 3/D
  7. INTERFERON BETA [Concomitant]
     Indication: MULTIPLE SCLEROSIS
     Dosage: UNK, QOD

REACTIONS (9)
  - ABNORMAL DREAMS [None]
  - CRYING [None]
  - DELIRIUM [None]
  - DEPERSONALISATION [None]
  - DIARRHOEA [None]
  - DRUG WITHDRAWAL SYNDROME [None]
  - HEADACHE [None]
  - INFLUENZA LIKE ILLNESS [None]
  - PYREXIA [None]
